FAERS Safety Report 8261400-5 (Version None)
Quarter: 2012Q2

REPORT INFORMATION
  Report Type: 
  Country: None (occurrence: None)
  Receive Date: 20120405
  Receipt Date: 20120327
  Transmission Date: 20120825
  Serious: Yes (Hospitalization, Disabling)
  Sender: FDA-Public Use
  Company Number: US-BAYER-201041886NA

PATIENT
  Age: 50 Year
  Sex: Female
  Weight: 54.422 kg

DRUGS (5)
  1. YAZ [Suspect]
     Indication: PREMENSTRUAL SYNDROME
  2. YAZ [Suspect]
     Indication: CONTRACEPTION
     Dosage: UNK
     Route: 048
     Dates: start: 20080801, end: 20090901
  3. ASCORBIC ACID [Concomitant]
     Indication: IRON DEFICIENCY
     Dosage: UNK UNK, QD
     Dates: start: 19750101, end: 20090101
  4. DILANTIN [Concomitant]
  5. VITAMIN D [Concomitant]
     Indication: BONE DISORDER
     Dosage: UNK
     Dates: start: 19750101, end: 20090101

REACTIONS (9)
  - MENTAL DISORDER [None]
  - HAEMORRHAGIC STROKE [None]
  - CONVULSION [None]
  - SLOW SPEECH [None]
  - DEEP VEIN THROMBOSIS [None]
  - DYSKINESIA [None]
  - OEDEMA PERIPHERAL [None]
  - ASTHENIA [None]
  - MENTAL STATUS CHANGES [None]
